FAERS Safety Report 7655647-6 (Version None)
Quarter: 2011Q3

REPORT INFORMATION
  Report Type: 
  Country: None (occurrence: None)
  Receive Date: 20110804
  Receipt Date: 20110801
  Transmission Date: 20111222
  Serious: Yes (Hospitalization)
  Sender: FDA-Public Use
  Company Number: FR-GILEAD-2011-0042466

PATIENT
  Sex: Male

DRUGS (5)
  1. TRUVADA [Suspect]
     Indication: HIV INFECTION
     Route: 048
  2. NORVIR [Suspect]
     Indication: HIV INFECTION
     Route: 048
  3. REYATAZ [Suspect]
     Indication: HIV INFECTION
     Route: 048
  4. ABILIFY [Suspect]
     Indication: HIV INFECTION
     Route: 048
  5. TRILEPTAL [Suspect]
     Indication: HIV INFECTION
     Route: 048

REACTIONS (1)
  - RENAL COLIC [None]
